FAERS Safety Report 12445291 (Version 1)
Quarter: 2016Q2

REPORT INFORMATION
  Report Type: Report from Study
  Country: US (occurrence: US)
  Receive Date: 20160607
  Receipt Date: 20160607
  Transmission Date: 20160815
  Serious: No
  Sender: FDA-Public Use
  Company Number: US-009507513-1605USA012763

PATIENT
  Age: 34 Year
  Weight: 165 kg

DRUGS (1)
  1. IMPLANON [Suspect]
     Active Substance: ETONOGESTREL
     Dosage: UNK
     Route: 059
     Dates: start: 20140609, end: 20160524

REACTIONS (2)
  - Menstruation irregular [Unknown]
  - Medical device removal [Unknown]

NARRATIVE: CASE EVENT DATE: 20160524
